FAERS Safety Report 10164899 (Version 1)
Quarter: 2014Q2

REPORT INFORMATION
  Report Type: Spontaneous
  Country: US (occurrence: US)
  Receive Date: 20140510
  Receipt Date: 20140510
  Transmission Date: 20141212
  Serious: No
  Sender: FDA-Public Use
  Company Number: US-BRISTOL-MYERS SQUIBB COMPANY-19548320

PATIENT
  Age: 54 Year
  Sex: Female
  Weight: 74.37 kg

DRUGS (2)
  1. BYETTA [Suspect]
     Indication: TYPE 2 DIABETES MELLITUS
     Route: 058
     Dates: start: 20131007
  2. GLUCOPHAGE [Suspect]

REACTIONS (1)
  - Blood glucose increased [Not Recovered/Not Resolved]
